FAERS Safety Report 4616930-1 (Version None)
Quarter: 2005Q1

REPORT INFORMATION
  Report Type: 
  Country: None (occurrence: None)
  Receive Date: 20050321
  Receipt Date: 20050307
  Transmission Date: 20050727
  Serious: Yes (Death)
  Sender: FDA-Public Use
  Company Number: 2005042132

PATIENT
  Sex: Female

DRUGS (1)
  1. XANOR DEPOT  (ALPRAZOLAM) [Suspect]
     Indication: ILL-DEFINED DISORDER
     Dosage: 80 TABLETS, ORAL
     Route: 048

REACTIONS (3)
  - HAEMATEMESIS [None]
  - HAEMORRHAGE [None]
  - OVERDOSE [None]
